FAERS Safety Report 6473724-2 (Version None)
Quarter: 2009Q4

REPORT INFORMATION
  Report Type: 
  Country: None (occurrence: None)
  Receive Date: 20091204
  Receipt Date: 20091126
  Transmission Date: 20100525
  Serious: Yes (Hospitalization)
  Sender: FDA-Public Use
  Company Number: FR-JNJFOC-20091107867

PATIENT
  Age: 76 Year
  Sex: Female

DRUGS (10)
  1. TAVANIC [Suspect]
     Indication: PNEUMONIA
     Route: 048
     Dates: start: 20090514, end: 20090529
  2. SINTROM [Interacting]
     Indication: ARRHYTHMIA
     Route: 048
     Dates: end: 20090516
  3. AUGMENTIN '125' [Interacting]
     Indication: PNEUMONIA
     Route: 065
     Dates: start: 20090509, end: 20090514
  4. ANTIVITAMIN K [Suspect]
     Indication: DRUG USE FOR UNKNOWN INDICATION
     Route: 065
  5. ELISOR [Concomitant]
     Route: 065
  6. LEVOTHYROXINE SODIUM [Concomitant]
     Route: 065
  7. ESOMEPRAZOLE [Concomitant]
     Route: 065
  8. MOTILIUM [Concomitant]
     Route: 065
  9. RENAGEL [Concomitant]
     Route: 065
  10. NEORECORMON [Concomitant]
     Route: 065

REACTIONS (4)
  - ANAEMIA [None]
  - ARTERIOVENOUS FISTULA SITE HAEMORRHAGE [None]
  - DRUG INTERACTION [None]
  - INTERNATIONAL NORMALISED RATIO INCREASED [None]
